FAERS Safety Report 9773246 (Version 1)
Quarter: 2013Q4

REPORT INFORMATION
  Report Type: Spontaneous
  Country: US (occurrence: US)
  Receive Date: 20131219
  Receipt Date: 20131219
  Transmission Date: 20140711
  Serious: Yes (Other)
  Sender: FDA-Public Use
  Company Number: US-GLAXOSMITHKLINE-A1054031A

PATIENT
  Sex: 0

DRUGS (3)
  1. LAMICTAL [Suspect]
     Indication: EPILEPSY
     Dosage: 200MG AT NIGHT
     Route: 065
  2. VIMPAT [Suspect]
     Indication: EPILEPSY
     Dosage: 200MG TWICE PER DAY
     Route: 065
  3. CLONAZEPAM [Concomitant]

REACTIONS (10)
  - Convulsion [Unknown]
  - Hypoaesthesia oral [Unknown]
  - Muscle twitching [Unknown]
  - Myoclonus [Unknown]
  - Overdose [Unknown]
  - Eyelid ptosis [Unknown]
  - Visual impairment [Unknown]
  - Vision blurred [Unknown]
  - Treatment noncompliance [Unknown]
  - Inappropriate schedule of drug administration [Unknown]
